FAERS Safety Report 6300974-8 (Version None)
Quarter: 2009Q3

REPORT INFORMATION
  Report Type: 
  Country: None (occurrence: None)
  Receive Date: 20090807
  Receipt Date: 20090727
  Transmission Date: 20100115
  Serious: Yes (Other)
  Sender: FDA-Public Use
  Company Number: ES-JNJFOC-20090709994

PATIENT
  Age: 61 Year
  Sex: Female

DRUGS (8)
  1. REMICADE [Suspect]
     Indication: RHEUMATOID ARTHRITIS
     Route: 042
  2. GLUCOCORTICOIDS [Concomitant]
  3. METHOTREXATE [Concomitant]
  4. NONSTEROIDAL ANTIINFLAMMATORY DRUGS [Concomitant]
  5. OMEPRAZOLE [Concomitant]
  6. CALCIUM AND VITAMIN D [Concomitant]
  7. DEFLAZACORT [Concomitant]
  8. METAMIZOLE [Concomitant]

REACTIONS (4)
  - HAEMANGIOMA OF LIVER [None]
  - MERALGIA PARAESTHETICA [None]
  - OSTEOPENIA [None]
  - TUBERCULOSIS [None]
